FAERS Safety Report 9290525 (Version 2)
Quarter: 2013Q2

REPORT INFORMATION
  Report Type: Report from Study
  Country: US (occurrence: US)
  Receive Date: 20130515
  Receipt Date: 20130605
  Transmission Date: 20140414
  Serious: Yes (Hospitalization)
  Sender: FDA-Public Use
  Company Number: US-ROCHE-1224544

PATIENT
  Age: 22 Year
  Sex: Female

DRUGS (7)
  1. ACTEMRA [Suspect]
     Indication: JUVENILE IDIOPATHIC ARTHRITIS
     Dosage: DOSE OF FOUR RECENT INFUSION PRIOR TO AE WAS 440MG
     Route: 042
  2. PREDNISONE [Concomitant]
     Indication: RHEUMATOID ARTHRITIS
  3. NAPROSYN [Concomitant]
     Indication: RHEUMATOID ARTHRITIS
  4. METHOTREXATE [Concomitant]
     Indication: RHEUMATOID ARTHRITIS
  5. FOLIC ACID [Concomitant]
     Indication: RHEUMATOID ARTHRITIS
  6. VICODIN [Concomitant]
     Indication: RHEUMATOID ARTHRITIS
  7. VITAMIN C [Concomitant]

REACTIONS (2)
  - Syncope [Recovered/Resolved]
  - Concussion [Recovered/Resolved]
